FAERS Safety Report 15670823 (Version 1)
Quarter: 2018Q4

REPORT INFORMATION
  Report Type: Spontaneous
  Country: FR (occurrence: FR)
  Receive Date: 20181129
  Receipt Date: 20181129
  Transmission Date: 20190205
  Serious: Yes (Hospitalization, Other)
  Sender: FDA-Public Use
  Company Number: PHHY2018FR167500

PATIENT
  Age: 48 Year
  Sex: Male
  Weight: 60 kg

DRUGS (3)
  1. PIPERACILLIN AND TAZOBACTAM [Suspect]
     Active Substance: PIPERACILLIN SODIUM\TAZOBACTAM SODIUM
     Indication: OSTEITIS
     Dosage: 4 G, QD
     Route: 042
     Dates: start: 20121119, end: 20121214
  2. FUSIDIC ACID [Suspect]
     Active Substance: FUSIDIC ACID
     Indication: OSTEITIS
     Dosage: 500 MG, QD
     Route: 048
     Dates: start: 20121203, end: 20121214
  3. TAVANIC [Suspect]
     Active Substance: LEVOFLOXACIN
     Indication: OSTEITIS
     Dosage: 500 MG,QD
     Route: 048
     Dates: start: 20121119, end: 20121214

REACTIONS (1)
  - Haemophagocytic lymphohistiocytosis [Recovered/Resolved]

NARRATIVE: CASE EVENT DATE: 20121209
